FAERS Safety Report 4302855-8 (Version None)
Quarter: 2004Q1

REPORT INFORMATION
  Report Type: 
  Country: None (occurrence: None)
  Receive Date: 20040220
  Receipt Date: 20040211
  Transmission Date: 20041129
  Serious: Yes (Hospitalization)
  Sender: FDA-Public Use
  Company Number: 2004009466

PATIENT
  Age: 72 Year
  Sex: Male
  Weight: 97 kg

DRUGS (12)
  1. TIKOSYN [Suspect]
     Indication: ILL-DEFINED DISORDER
     Dates: start: 20021101, end: 20031210
  2. INSULIN GLARGINE (INSULIN GLARGINE) [Concomitant]
  3. INSULIN LISPRO (INSULIN LISPRO) [Concomitant]
  4. POTASSIUM CHLORIDE [Concomitant]
  5. LOTRISONE [Concomitant]
  6. LANSOPRAZOLE [Concomitant]
  7. FUROSEMIDE [Concomitant]
  8. LOPERAMIDE HCL [Concomitant]
  9. NIZATIDINE [Concomitant]
  10. BENZONATATE (BENZONATATE) [Concomitant]
  11. ATORVASTATIN CALCIUM [Concomitant]
  12. PROCHLORPERAZINE [Concomitant]

REACTIONS (24)
  - ACIDOSIS [None]
  - ANION GAP DECREASED [None]
  - ATRIAL FIBRILLATION [None]
  - ATRIOVENTRICULAR BLOCK FIRST DEGREE [None]
  - BASE EXCESS NEGATIVE [None]
  - BLOOD BICARBONATE DECREASED [None]
  - BLOOD CHLORIDE INCREASED [None]
  - BLOOD CREATININE INCREASED [None]
  - BLOOD GLUCOSE INCREASED [None]
  - BLOOD LACTIC ACID DECREASED [None]
  - BLOOD MAGNESIUM INCREASED [None]
  - BLOOD SODIUM DECREASED [None]
  - BLOOD UREA INCREASED [None]
  - BUNDLE BRANCH BLOCK RIGHT [None]
  - DEHYDRATION [None]
  - GRANULOCYTE COUNT INCREASED [None]
  - HYPERKALAEMIA [None]
  - NAUSEA [None]
  - OXYGEN SATURATION DECREASED [None]
  - PCO2 DECREASED [None]
  - RED BLOOD CELL COUNT DECREASED [None]
  - SINUS BRADYCARDIA [None]
  - VOMITING [None]
  - WHITE BLOOD CELL COUNT INCREASED [None]
